FAERS Safety Report 25761758 (Version 1)
Quarter: 2025Q3

REPORT INFORMATION
  Report Type: Report from Study
  Country: US (occurrence: US)
  Receive Date: 20250904
  Receipt Date: 20250904
  Transmission Date: 20251021
  Serious: Yes (Other)
  Sender: ALEXION PHARMACEUTICALS
  Company Number: US-ASTRAZENECA-202507USA029926US

PATIENT
  Age: 56 Year
  Sex: Female

DRUGS (1)
  1. STRENSIQ [Suspect]
     Active Substance: ASFOTASE ALFA
     Indication: Hyperphosphataemia
     Dosage: 1 MILLIGRAM/KILOGRAM, SIX TIMES/WEEK
     Route: 065

REACTIONS (16)
  - Breast cancer [Recovering/Resolving]
  - Pain [Unknown]
  - Fatigue [Unknown]
  - Weight decreased [Unknown]
  - Blood glucose increased [Unknown]
  - Carbon dioxide increased [Unknown]
  - Blood phosphorus increased [Unknown]
  - Vitamin B6 increased [Unknown]
  - Albumin globulin ratio decreased [Unknown]
  - Monocyte count increased [Unknown]
  - Basophil count increased [Unknown]
  - Hepatic lesion [Unknown]
  - Haemangioma [Unknown]
  - Cyst [Unknown]
  - Lithiasis [Unknown]
  - Regurgitation [Unknown]

NARRATIVE: CASE EVENT DATE: 20240102
